FAERS Safety Report 9798436 (Version 12)
Quarter: 2015Q2

REPORT INFORMATION
  Report Type: Report from Study
  Country: AR (occurrence: AR)
  Receive Date: 20140106
  Receipt Date: 20150508
  Transmission Date: 20150821
  Serious: Yes (Hospitalization)
  Sender: FDA-Public Use
  Company Number: AR-PFIZER INC-2014000608

PATIENT
  Age: 42 Year
  Sex: Male

DRUGS (17)
  1. EPAMIN [Suspect]
     Active Substance: PHENYTOIN SODIUM
     Dosage: 100 MG, 3X/DAY
     Route: 048
     Dates: start: 20131214, end: 20131214
  2. DEXAMETHASONE. [Suspect]
     Active Substance: DEXAMETHASONE
     Dosage: 8 MG, 3X/DAY
     Route: 042
     Dates: start: 20131214
  3. HEPARIN [Concomitant]
     Active Substance: HEPARIN SODIUM
     Dosage: 0.2 MG, 2X/DAY
     Route: 058
     Dates: start: 20131214
  4. DOXYCYCLINE. [Concomitant]
     Active Substance: DOXYCYCLINE
     Dosage: 100 MG, UNK
     Dates: start: 20121116
  5. VEMURAFENIB [Suspect]
     Active Substance: VEMURAFENIB
     Dosage: 720 MG, 2X/DAY (DATE OF LAST DOSE PRIOR TO SAE: 13/DEC/2013)
     Route: 048
     Dates: start: 20121127, end: 20131213
  6. EPAMIN [Suspect]
     Active Substance: PHENYTOIN SODIUM
     Dosage: 100 MG, 2X/DAY
     Route: 048
     Dates: start: 20131215, end: 20131215
  7. BETAMETHASONE [Concomitant]
     Active Substance: BETAMETHASONE
     Dosage: UNK
     Dates: start: 20120712
  8. BENZOYL PEROXIDE. [Concomitant]
     Active Substance: BENZOYL PEROXIDE
     Dosage: 5 %, UNK
     Route: 061
     Dates: start: 20121116
  9. OMEPRAZOLE. [Suspect]
     Active Substance: OMEPRAZOLE
     Dosage: PER DAY (40 MG)
     Route: 042
     Dates: start: 20131214
  10. KEPPRA [Concomitant]
     Active Substance: LEVETIRACETAM
     Dosage: 250 MG, 2X/DAY
     Route: 048
     Dates: start: 20131216
  11. SCHERIDERM [Concomitant]
     Dosage: CREAM
     Dates: start: 20121116
  12. CLINDAMYCIN [Concomitant]
     Active Substance: CLINDAMYCIN\CLINDAMYCIN PHOSPHATE
     Dosage: TOTAL DAILY DOSE: 1%
     Dates: start: 20121116
  13. GADOLINIUM [Suspect]
     Active Substance: GADOLINIUM
     Dosage: UNK
     Route: 065
     Dates: start: 20131214, end: 20131214
  14. GENTAMICIN. [Concomitant]
     Active Substance: GENTAMICIN
     Dosage: UNK
     Dates: start: 20120712
  15. VEMURAFENIB [Suspect]
     Active Substance: VEMURAFENIB
     Indication: MALIGNANT MELANOMA
     Dosage: 960 MG, 2X/DAY (DATE OF LAST DOSE PRIOR TO SAE:20/DEC/2013)
     Route: 048
     Dates: start: 20120507, end: 20121120
  16. KEPPRA [Concomitant]
     Active Substance: LEVETIRACETAM
     Dosage: 250 MG, 2X/DAY
     Route: 048
     Dates: start: 20131215, end: 20131215
  17. LEVOTHYROXIN [Concomitant]
     Active Substance: LEVOTHYROXINE
     Dosage: 100 MG, UNK
     Dates: start: 20100601

REACTIONS (1)
  - Blood creatinine increased [Recovered/Resolved]

NARRATIVE: CASE EVENT DATE: 20131215
